FAERS Safety Report 5796881-X (Version None)
Quarter: 2008Q2

REPORT INFORMATION
  Report Type: 
  Country: None (occurrence: None)
  Receive Date: 20080618
  Receipt Date: 20070531
  Transmission Date: 20081010
  Serious: Yes (Other)
  Sender: FDA-Public Use
  Company Number: 200713359US

PATIENT
  Age: 58 Year
  Sex: Female

DRUGS (4)
  1. LANTUS [Suspect]
     Indication: TYPE 2 DIABETES MELLITUS
     Dosage: 16 U
     Dates: start: 20070414
  2. OPTICLIK [Suspect]
     Indication: TYPE 2 DIABETES MELLITUS
     Dates: start: 20070414
  3. PIOGLITAZONE [Concomitant]
  4. REPAGLINIDE (PRANDIN /01393601/) [Concomitant]

REACTIONS (2)
  - BLOOD GLUCOSE INCREASED [None]
  - HYPERGLYCAEMIA [None]
